FAERS Safety Report 26067625 (Version 1)
Quarter: 2025Q4

REPORT INFORMATION
  Report Type: Report from Study
  Country: GB (occurrence: GB)
  Receive Date: 20251120
  Receipt Date: 20251120
  Transmission Date: 20260118
  Serious: Yes (Death, Hospitalization, Other)
  Sender: CELLTRION
  Company Number: GB-CELLTRION INC.-2025GB027123

PATIENT

DRUGS (2)
  1. INFLIXIMAB-DYYB [Suspect]
     Active Substance: INFLIXIMAB-DYYB
     Indication: Colitis ulcerative
     Dosage: REMSIMA 120MG/1ML SOLUTION FOR INJECTION PRE-FILLED PENS - INJECT ONE PRE-FILLED PEN EVERY TWO WEEKS
     Route: 058
     Dates: start: 202506
  2. INFLIXIMAB-DYYB [Suspect]
     Active Substance: INFLIXIMAB-DYYB
     Dosage: 2 X REMSIMA 120MG/1ML SOLUTION FOR INJECTION PRE-FILLED PENS, INJECT ONE PRE-FILLED PEN EVERY TWO WE
     Route: 058
     Dates: start: 202506

REACTIONS (5)
  - Death [Fatal]
  - Fall [Unknown]
  - Pneumonia [Unknown]
  - Diarrhoea [Recovering/Resolving]
  - Oedema peripheral [Recovering/Resolving]

NARRATIVE: CASE EVENT DATE: 20250928
